FAERS Safety Report 9135868 (Version 1)
Quarter: 2013Q1

REPORT INFORMATION
  Report Type: Spontaneous
  Country: US (occurrence: US)
  Receive Date: 20130219
  Receipt Date: 20130219
  Transmission Date: 20140127
  Serious: No
  Sender: FDA-Public Use
  Company Number: US-BRISTOL-MYERS SQUIBB COMPANY-17120775

PATIENT
  Sex: Female
  Weight: 81.63 kg

DRUGS (2)
  1. ORENCIA [Suspect]
     Indication: RHEUMATOID ARTHRITIS
     Dosage: INFUSION
     Route: 042
  2. BONIVA [Concomitant]

REACTIONS (3)
  - Pain [Unknown]
  - Fatigue [Unknown]
  - Eye inflammation [Unknown]
